FAERS Safety Report 6325456-9 (Version None)
Quarter: 2009Q3

REPORT INFORMATION
  Report Type: 
  Country: None (occurrence: None)
  Receive Date: 20090824
  Receipt Date: 20090707
  Transmission Date: 20100115
  Serious: No
  Sender: FDA-Public Use
  Company Number: US-ABBOTT-09P-163-0584276-00

PATIENT
  Sex: Male
  Weight: 91.708 kg

DRUGS (9)
  1. NIASPAN [Suspect]
     Indication: BLOOD CHOLESTEROL INCREASED
     Route: 048
     Dates: start: 20090101
  2. SIMVASTATIN [Concomitant]
     Indication: BLOOD CHOLESTEROL
     Route: 048
  3. COUMADIN [Concomitant]
     Indication: TRANSIENT ISCHAEMIC ATTACK
     Route: 048
     Dates: start: 20050101
  4. COUMADIN [Concomitant]
     Indication: CORONARY ARTERIAL STENT INSERTION
  5. GLYBURIDE [Concomitant]
     Indication: DIABETES MELLITUS
     Route: 048
  6. COZAAR [Concomitant]
     Indication: BLOOD PRESSURE
     Route: 048
  7. TERAZOSIN HCL [Concomitant]
     Indication: BLOOD PRESSURE
     Route: 048
  8. METOPROLOL [Concomitant]
     Indication: CARDIAC DISORDER
     Route: 048
  9. METOPROLOL [Concomitant]
     Indication: BLOOD PRESSURE

REACTIONS (1)
  - FLUSHING [None]
